FAERS Safety Report 6655524-3 (Version None)
Quarter: 2010Q1

REPORT INFORMATION
  Report Type: 
  Country: None (occurrence: None)
  Receive Date: 20100329
  Receipt Date: 20100318
  Transmission Date: 20100710
  Serious: Yes (Other)
  Sender: FDA-Public Use
  Company Number: US-PFIZER INC-2010036002

PATIENT
  Sex: Male

DRUGS (1)
  1. SOLU-MEDROL [Suspect]
     Indication: MULTIPLE SCLEROSIS
     Dosage: 1 G, UNK
     Route: 042

REACTIONS (3)
  - TREMOR [None]
  - UNRESPONSIVE TO STIMULI [None]
  - VOMITING [None]
